FAERS Safety Report 24801762 (Version 1)
Quarter: 2025Q1

REPORT INFORMATION
  Report Type: Other
  Country: US (occurrence: US)
  Receive Date: 20250102
  Receipt Date: 20250102
  Transmission Date: 20250409
  Serious: No
  Sender: HLS THERAPEUTICS
  Company Number: US-HLS-202400004

PATIENT
  Age: 23 Year
  Sex: Male

DRUGS (8)
  1. CLOZAPINE [Suspect]
     Active Substance: CLOZAPINE
     Indication: Schizophrenia
     Route: 048
  2. HALOPERIDOL [Concomitant]
     Active Substance: HALOPERIDOL
     Indication: Schizophrenia
     Route: 065
  3. REMOXIPRIDE [Concomitant]
     Active Substance: REMOXIPRIDE
     Indication: Schizophrenia
     Route: 065
  4. REMOXIPRIDE [Concomitant]
     Active Substance: REMOXIPRIDE
     Indication: Schizophrenia
     Dosage: TITRATED UP TO 300 MG/DAY
     Route: 065
  5. BROMOCRIPTINE [Concomitant]
     Active Substance: BROMOCRIPTINE
     Indication: Schizophrenia
     Route: 065
  6. BROMOCRIPTINE [Concomitant]
     Active Substance: BROMOCRIPTINE
     Indication: Schizophrenia
     Route: 065
  7. BROMOCRIPTINE [Concomitant]
     Active Substance: BROMOCRIPTINE
     Indication: Schizophrenia
     Route: 065
  8. ZUCLOPENTHIXOL [Concomitant]
     Active Substance: ZUCLOPENTHIXOL
     Indication: Schizophrenia
     Route: 065

REACTIONS (1)
  - Therapeutic response unexpected [Unknown]
